FAERS Safety Report 10210317 (Version 1)
Quarter: 2014Q2

REPORT INFORMATION
  Report Type: Spontaneous
  Country: US (occurrence: US)
  Receive Date: 20140602
  Receipt Date: 20140602
  Transmission Date: 20141212
  Serious: Yes (Other)
  Sender: FDA-Public Use
  Company Number: US-JNJFOC-20140512427

PATIENT
  Sex: 0

DRUGS (3)
  1. USTEKINUMAB [Suspect]
     Indication: CROHN^S DISEASE
     Dosage: WEEK ZERO, INDUCTION DOSE, COMMON MAINTENANCE DOSE
     Route: 058
  2. USTEKINUMAB [Suspect]
     Indication: CROHN^S DISEASE
     Dosage: WEEK ZERO, INDUCTION DOSE
     Route: 058
  3. USTEKINUMAB [Suspect]
     Indication: CROHN^S DISEASE
     Dosage: WEEK ZERO, INDUCTION DOSE
     Route: 058

REACTIONS (5)
  - Device related sepsis [Unknown]
  - Herpes zoster [Unknown]
  - Arthralgia [Unknown]
  - Off label use [Unknown]
  - Therapeutic response changed [Unknown]
